FAERS Safety Report 18418869 (Version 1)
Quarter: 2020Q4

REPORT INFORMATION
  Report Type: Spontaneous
  Country: SI (occurrence: SI)
  Receive Date: 20201023
  Receipt Date: 20201023
  Transmission Date: 20210114
  Serious: Yes (Hospitalization, Disabling)
  Sender: FDA-Public Use
  Company Number: SI-BAYER-2020-220476

PATIENT
  Age: 70 Year
  Sex: Female

DRUGS (13)
  1. MACROBID [CLARITHROMYCIN] [Suspect]
     Active Substance: CLARITHROMYCIN
     Indication: URINARY TRACT INFECTION
     Dosage: 100 MG, BID
     Route: 048
     Dates: start: 2016
  2. LYRICA [Concomitant]
     Active Substance: PREGABALIN
     Dosage: 75 MG, BID
     Route: 048
  3. LIORESAL [Concomitant]
     Active Substance: BACLOFEN
     Dosage: 25 MG, BID
     Route: 048
  4. SANVAL [Concomitant]
     Active Substance: ZOLPIDEM TARTRATE
     Dosage: 10 MG, PRN IN THE EVENINGS IN CASE OF INSOMNIA (2-4X PER WEEK)
     Route: 048
  5. ACIPAN [Concomitant]
     Active Substance: PANTOPRAZOLE SODIUM
     Dosage: 40 MG, QD IN THE MORNINGS ON AN EMPTY STOMACH
     Route: 048
  6. CONCOR COR [Concomitant]
     Active Substance: BISOPROLOL FUMARATE
     Dosage: 2.5 MG, QD IN THE MORNINGS
     Route: 048
  7. BETMIGA [Concomitant]
     Active Substance: MIRABEGRON
     Dosage: 50 MG, QD IN THE MORNINGS
     Route: 048
  8. NEURONTIN [Concomitant]
     Active Substance: GABAPENTIN
     Dosage: 100 MG AND 300 MG KAPSULES, DUE TO MALAISE THE PATIENT HAS NOT STARTED TAKING THEM YET
     Route: 048
  9. SYMMETREL [Concomitant]
     Active Substance: AMANTADINE HYDROCHLORIDE
     Dosage: 100 MG, BID
     Route: 048
  10. MICARDIS [Concomitant]
     Active Substance: TELMISARTAN
     Dosage: 40 MG, QD IN THE MORNINGS
     Route: 048
  11. BETAFERON [Suspect]
     Active Substance: INTERFERON BETA-1B
     Indication: MULTIPLE SCLEROSIS
     Dosage: 1 DF, QOD
     Route: 058
  12. NITROFURANTOIN. [Suspect]
     Active Substance: NITROFURANTOIN
     Indication: PROPHYLAXIS URINARY TRACT INFECTION
     Dosage: 10 ML, QD
     Route: 048
     Dates: start: 201807
  13. FOLKODIN ALKALOID [Concomitant]
     Indication: COUGH
     Dosage: 10 MG
     Route: 048

REACTIONS (1)
  - Interstitial lung disease [Not Recovered/Not Resolved]

NARRATIVE: CASE EVENT DATE: 202008
